FAERS Safety Report 10633766 (Version 1)
Quarter: 2014Q4

REPORT INFORMATION
  Report Type: Spontaneous
  Country: DE (occurrence: DE)
  Receive Date: 20141205
  Receipt Date: 20141205
  Transmission Date: 20150529
  Serious: Yes (Hospitalization)
  Sender: FDA-Public Use
  Company Number: DE-UCBSA-2014020330

PATIENT
  Age: 64 Year
  Sex: Male

DRUGS (5)
  1. NEUPRO [Suspect]
     Active Substance: ROTIGOTINE
     Dosage: 4 MG
     Route: 062
  2. PERGOLID [Suspect]
     Active Substance: PERGOLIDE MESYLATE
     Dosage: 0.2 MG ; TAPERING
  3. NEUPRO [Suspect]
     Active Substance: ROTIGOTINE
     Indication: PARKINSON^S DISEASE
     Dosage: 2 MG
     Route: 062
  4. PERGOLID [Suspect]
     Active Substance: PERGOLIDE MESYLATE
     Indication: PARKINSON^S DISEASE
     Dosage: 1 MG, 4X/DAY (QID)
  5. PERGOLID [Suspect]
     Active Substance: PERGOLIDE MESYLATE
     Dosage: 1 MG, 4X/DAY (QID)

REACTIONS (11)
  - Diverticulitis [Unknown]
  - Fatigue [Unknown]
  - Headache [Unknown]
  - Dry mouth [Unknown]
  - Akinesia [Unknown]
  - Nightmare [Unknown]
  - Muscle spasms [Unknown]
  - Hyperhidrosis [Unknown]
  - Sleep disorder [Unknown]
  - Dry eye [Unknown]
  - Hypokinesia [Unknown]
